FAERS Safety Report 4295941-2 (Version None)
Quarter: 2004Q1

REPORT INFORMATION
  Report Type: 
  Country: None (occurrence: None)
  Receive Date: 20040212
  Receipt Date: 20040203
  Transmission Date: 20041129
  Serious: Yes (Other)
  Sender: FDA-Public Use
  Company Number: PERI00203000940

PATIENT
  Age: 76 Year
  Sex: Male
  Weight: 86 kg

DRUGS (11)
  1. COVERSYL (PERINDOPRIL) [Suspect]
     Indication: ESSENTIAL HYPERTENSION
     Dosage: 2 MG QD PO
     Route: 048
     Dates: start: 20000101
  2. VIOXX [Suspect]
     Indication: ILL-DEFINED DISORDER
     Dosage: 12.5 MG DAILY PO
     Route: 048
     Dates: start: 20011201, end: 20021023
  3. LASIX [Suspect]
     Indication: ILL-DEFINED DISORDER
     Dosage: 80 MG DAILY PO
     Route: 048
     Dates: start: 20000101
  4. LANOXIN [Concomitant]
  5. WARFARIN SODIUM [Concomitant]
  6. LIPITOR [Concomitant]
  7. PANAFCORTELONE (PREDNISOLONE) [Concomitant]
  8. LOSEC (OMEPRAZOLE) [Concomitant]
  9. NEURONTIN [Concomitant]
  10. HUMALOG [Concomitant]
  11. IMDUR [Concomitant]

REACTIONS (2)
  - DRUG INTERACTION [None]
  - RENAL FAILURE ACUTE [None]
